FAERS Safety Report 9649063 (Version 3)
Quarter: 2014Q1

REPORT INFORMATION
  Report Type: Report from Study
  Country: FR (occurrence: FR)
  Receive Date: 20131028
  Receipt Date: 20140304
  Transmission Date: 20141002
  Serious: Yes (Hospitalization, Other)
  Sender: FDA-Public Use
  Company Number: FR-BRISTOL-MYERS SQUIBB COMPANY-19461573

PATIENT
  Age: 60 Year
  Sex: Female

DRUGS (3)
  1. LYSODREN [Suspect]
     Indication: ADRENOCORTICAL CARCINOMA
     Dosage: INTERRUPTED:2013, MAR2009-OCT2009, DEC09-OCT11, FEB13-30JUL13;4500MG, 01AUG13-10SEP13;3000MG
     Dates: start: 200903
  2. HYDROCORTISONE [Concomitant]
     Dates: start: 200903, end: 200910
  3. FLUDROCORTISONE [Concomitant]
     Dates: start: 200903, end: 200910

REACTIONS (11)
  - Apathy [Unknown]
  - Confusional state [Recovered/Resolved]
  - Cerebellar syndrome [Unknown]
  - Memory impairment [Recovering/Resolving]
  - Diarrhoea [Recovered/Resolved]
  - Abdominal pain [Recovered/Resolved]
  - Dizziness [Unknown]
  - Decreased appetite [Unknown]
  - Balance disorder [Unknown]
  - Orthostatic hypotension [Unknown]
  - Disorientation [Recovered/Resolved]
